FAERS Safety Report 8466183-1 (Version None)
Quarter: 2012Q2

REPORT INFORMATION
  Report Type: 
  Country: None (occurrence: None)
  Receive Date: 20120626
  Receipt Date: 20120618
  Transmission Date: 20120825
  Serious: Yes (Hospitalization)
  Sender: FDA-Public Use
  Company Number: GB-B.I. PHARMACEUTICALS,INC./RIDGEFIELD-2012-UK-00698UK

PATIENT
  Sex: Male
  Weight: 103.7 kg

DRUGS (25)
  1. METFORMIN HCL [Concomitant]
     Indication: DIABETES MELLITUS
     Dosage: 1500 MG
     Route: 048
  2. NEXIUM [Concomitant]
     Indication: GASTRITIS
     Dosage: 20 MG
     Route: 048
     Dates: start: 20120210, end: 20120606
  3. SPIRIVA [Concomitant]
     Indication: CHRONIC OBSTRUCTIVE PULMONARY DISEASE
     Dosage: 18 MCG
     Route: 055
     Dates: end: 20111107
  4. LANSOPRAZOLE [Concomitant]
     Indication: GASTRITIS
     Dosage: 30 MG
     Route: 048
     Dates: start: 20120606
  5. CAPSAICIN [Concomitant]
     Indication: DIABETIC NEUROPATHY
     Dosage: 0.075% TDS
     Route: 061
  6. PREDNISOLONE [Concomitant]
     Indication: CHRONIC OBSTRUCTIVE PULMONARY DISEASE
     Dosage: 1 MG
     Route: 048
  7. ACETAMINOPHEN [Concomitant]
     Indication: TEMPORAL ARTERITIS
     Dosage: 1 G
     Route: 048
  8. CLARITHROMYCIN [Concomitant]
     Indication: CHRONIC OBSTRUCTIVE PULMONARY DISEASE
     Dosage: 1 G
     Route: 048
     Dates: start: 20120412, end: 20120419
  9. SALMETEROL [Suspect]
     Indication: CHRONIC OBSTRUCTIVE PULMONARY DISEASE
     Dosage: 100 MCG
     Route: 055
     Dates: start: 20111109
  10. FLUTICASONE PROPIONATE/SALMETEROL [Concomitant]
     Indication: CHRONIC OBSTRUCTIVE PULMONARY DISEASE
     Dosage: 1000 MCG
     Route: 055
     Dates: end: 20111108
  11. METFORMIN MR [Concomitant]
     Indication: DIABETES MELLITUS
     Dosage: 500 MG
     Route: 048
     Dates: start: 20110913
  12. FUROSEMIDE [Concomitant]
     Indication: JOINT SWELLING
     Dosage: 40 MG
     Route: 048
     Dates: end: 20120606
  13. TIOTROPIUM BROMIDE [Suspect]
     Indication: CHRONIC OBSTRUCTIVE PULMONARY DISEASE
     Dosage: 18 MCG
     Route: 055
     Dates: start: 20111109
  14. QUININE SULFATE [Concomitant]
     Indication: MUSCLE SPASMS
     Dosage: 300 MG
     Route: 048
     Dates: end: 20120606
  15. AMOXICILLIN [Concomitant]
     Indication: CHRONIC OBSTRUCTIVE PULMONARY DISEASE
     Dosage: 1500 MG
     Route: 048
     Dates: start: 20120412, end: 20120419
  16. SITAGLIPTIN [Concomitant]
     Indication: DIABETES MELLITUS
     Dosage: 100 MG
     Route: 048
     Dates: start: 20120416
  17. AZITHROMYCIN [Concomitant]
     Indication: CHRONIC OBSTRUCTIVE PULMONARY DISEASE
     Dosage: 250 MG
     Route: 048
     Dates: start: 20120606, end: 20120614
  18. AMYTRIPTYLLINE [Concomitant]
     Indication: PAIN
     Dosage: 10 MG
     Route: 048
     Dates: start: 20110913, end: 20110913
  19. GLYCLAZIDE [Concomitant]
     Indication: DIABETES MELLITUS
     Dosage: 320 MG
     Route: 048
  20. ALBUTEROL [Concomitant]
     Indication: CHRONIC OBSTRUCTIVE PULMONARY DISEASE
     Dosage: 200 MCG
     Route: 055
     Dates: start: 20111109, end: 20120523
  21. VENTOLIN [Concomitant]
     Indication: CHRONIC OBSTRUCTIVE PULMONARY DISEASE
     Dosage: 200 MG
     Route: 055
     Dates: end: 20111107
  22. CARBOCISTEINE [Concomitant]
     Indication: CHRONIC OBSTRUCTIVE PULMONARY DISEASE
     Dosage: 1500 MG
     Route: 048
     Dates: end: 20110913
  23. CALCICHEW D3 [Concomitant]
     Indication: BONE DENSITY ABNORMAL
     Dosage: 2.5 G
     Route: 048
     Dates: end: 20120606
  24. IBUPROFEN [Concomitant]
     Indication: TEMPORAL ARTERITIS
     Dosage: 1200 MG
     Route: 048
     Dates: start: 20120409, end: 20120421
  25. SILDENAFIL [Concomitant]
     Indication: ERECTILE DYSFUNCTION
     Dosage: 10 MG
     Route: 048

REACTIONS (4)
  - BRONCHITIS CHEMICAL [None]
  - CHRONIC OBSTRUCTIVE PULMONARY DISEASE [None]
  - LACERATION [None]
  - TEMPORAL ARTERITIS [None]
